FAERS Safety Report 25535004 (Version 1)
Quarter: 2025Q3

REPORT INFORMATION
  Report Type: Spontaneous
  Country: US (occurrence: None)
  Receive Date: 20250709
  Receipt Date: 20250709
  Transmission Date: 20251020
  Serious: Yes (Hospitalization)
  Sender: FDA-CTU
  Company Number: None

PATIENT
  Age: 31 Year
  Sex: Female

DRUGS (4)
  1. RINVOQ [Suspect]
     Active Substance: UPADACITINIB
     Indication: Dermatitis atopic
     Dosage: FREQUENCY : DAILY;?
     Route: 048
     Dates: start: 20250312, end: 20250701
  2. ESCITALOPRAM OXALATE [Concomitant]
     Active Substance: ESCITALOPRAM OXALATE
  3. INTESTINEX CAPSULES [Concomitant]
  4. MlRENA SYSTEM IUD [Concomitant]

REACTIONS (3)
  - Headache [None]
  - Nausea [None]
  - Hypertension [None]

NARRATIVE: CASE EVENT DATE: 20250626
